FAERS Safety Report 4934913-9 (Version None)
Quarter: 2006Q1

REPORT INFORMATION
  Report Type: 
  Country: None (occurrence: None)
  Receive Date: 20060306
  Receipt Date: 20060306
  Transmission Date: 20060701
  Serious: Yes (Life-Threatening, Hospitalization)
  Sender: FDA-Public Use
  Company Number: None

PATIENT
  Age: 54 Year
  Sex: Female
  Weight: 80.7 kg

DRUGS (1)
  1. KETEK [Suspect]
     Indication: UPPER RESPIRATORY TRACT INFECTION
     Dosage: (1 DOSE ONLY)
     Dates: start: 20060131, end: 20060131

REACTIONS (7)
  - APHASIA [None]
  - BLOOD PH DECREASED [None]
  - DYSPNOEA [None]
  - INTUBATION COMPLICATION [None]
  - OBSTRUCTIVE AIRWAYS DISORDER [None]
  - PCO2 INCREASED [None]
  - PO2 INCREASED [None]
